FAERS Safety Report 20377757 (Version 1)
Quarter: 2022Q1

REPORT INFORMATION
  Report Type: Spontaneous
  Country: GB (occurrence: None)
  Receive Date: 20220126
  Receipt Date: 20220126
  Transmission Date: 20220423
  Serious: Yes (Hospitalization)
  Sender: FDA-Public Use
  Company Number: 2022A033224

PATIENT
  Sex: Female

DRUGS (3)
  1. FASENRA [Suspect]
     Active Substance: BENRALIZUMAB
     Indication: Asthma
     Dosage: UNKNOWN
     Route: 058
  2. PREDNISOLONE [Concomitant]
     Active Substance: PREDNISOLONE
     Dosage: 8 -5MG TABLETS DAILY FOR 5 DAYS
  3. PREDNISOLONE [Concomitant]
     Active Substance: PREDNISOLONE
     Dosage: SHE RETURNED TO HER MAINTENANCE DOSE OF PREDNISOLONE ONE 5MG TABLET DAILY

REACTIONS (2)
  - Lower respiratory tract infection [Unknown]
  - Asthma [Unknown]
